FAERS Safety Report 10025536 (Version 1)
Quarter: 2014Q1

REPORT INFORMATION
  Report Type: Spontaneous
  Country: NL (occurrence: NL)
  Receive Date: 20140320
  Receipt Date: 20140320
  Transmission Date: 20141002
  Serious: Yes (Other)
  Sender: FDA-Public Use
  Company Number: NL-PFIZER INC-2014079880

PATIENT
  Age: 45 Year
  Sex: Female

DRUGS (1)
  1. TRINORDIOL [Suspect]

REACTIONS (2)
  - Ovarian cancer [Unknown]
  - Drug dose omission [Unknown]
